FAERS Safety Report 20996764 (Version 2)
Quarter: 2022Q3

REPORT INFORMATION
  Report Type: Report from Study
  Country: ES (occurrence: None)
  Receive Date: 20220623
  Receipt Date: 20220712
  Transmission Date: 20221026
  Serious: Yes (Other)
  Sender: FDA-Public Use
  Company Number: ES-ROCHE-3122688

PATIENT
  Age: 40 Year
  Sex: Female
  Weight: 77.5 kg

DRUGS (2)
  1. PERTUZUMAB [Suspect]
     Active Substance: PERTUZUMAB
     Indication: Breast cancer
     Dosage: ON 29/DE/2020, SHE RECEIVED MOST RECENT DOSE OF  PERTUZUMAB  PRIOR TO  COVID 19 INFECTION.
     Route: 042
     Dates: start: 20191227
  2. TRASTUZUMAB [Suspect]
     Active Substance: TRASTUZUMAB
     Indication: Breast cancer
     Dosage: ON 29/DE/2020, SHE RECEIVED MOST RECENT DOSE OF TRASTUZUMAB  PRIOR TO  COVID 19 INFECTION.
     Route: 041
     Dates: start: 20191227

REACTIONS (1)
  - COVID-19 [Recovered/Resolved]

NARRATIVE: CASE EVENT DATE: 20210114
